FAERS Safety Report 12412208 (Version 2)
Quarter: 2016Q2

REPORT INFORMATION
  Report Type: Report from Study
  Country: CH (occurrence: CH)
  Receive Date: 20160527
  Receipt Date: 20160606
  Transmission Date: 20160815
  Serious: Yes (Hospitalization)
  Sender: FDA-Public Use
  Company Number: CH-ABBVIE-16P-151-1636110-00

PATIENT
  Age: 69 Year
  Sex: Male

DRUGS (1)
  1. DUODOPA [Suspect]
     Active Substance: CARBIDOPA\LEVODOPA
     Indication: PARKINSON^S DISEASE
     Dosage: CD DAY: 2.9 ML/H, CD NIGHT: 3.0 ML/H X 24 HR
     Route: 065

REACTIONS (5)
  - General physical health deterioration [Not Recovered/Not Resolved]
  - Tremor [Unknown]
  - Feeding disorder [Unknown]
  - Dehydration [Recovered/Resolved]
  - Hyperhidrosis [Unknown]

NARRATIVE: CASE EVENT DATE: 20160520
